FAERS Safety Report 6500074-8 (Version None)
Quarter: 2009Q4

REPORT INFORMATION
  Report Type: 
  Country: None (occurrence: None)
  Receive Date: 20091214
  Receipt Date: 20091214
  Transmission Date: 20100525
  Serious: No
  Sender: FDA-Public Use
  Company Number: None

PATIENT
  Sex: Female
  Weight: 94.3482 kg

DRUGS (2)
  1. LEVAQUIN [Suspect]
     Indication: PNEUMONIA
     Dosage: LEVAQUIN 500MG ORAL DAILY X10 DAYS
     Route: 048
     Dates: start: 20080219, end: 20080321
  2. LEVAQUIN [Suspect]
     Indication: PNEUMONIA
     Dosage: LEVAQUIN 500MG ORAL DAILY X10 DAYS
     Route: 048
     Dates: start: 20080708

REACTIONS (2)
  - IMPAIRED HEALING [None]
  - TENDONITIS [None]
